FAERS Safety Report 7450962-3 (Version None)
Quarter: 2011Q2

REPORT INFORMATION
  Report Type: 
  Country: None (occurrence: None)
  Receive Date: 20110422
  Receipt Date: 20110414
  Transmission Date: 20111010
  Serious: Yes (Hospitalization)
  Sender: FDA-Public Use
  Company Number: DSA_45413_2011

PATIENT

DRUGS (1)
  1. TETRABENAZINE (TETRABENAZINE) [Suspect]
     Indication: TARDIVE DYSKINESIA
     Dosage: (DF UNKNOWN)

REACTIONS (2)
  - VERTIGO [None]
  - DYSPHAGIA [None]
